FAERS Safety Report 4459272-X (Version None)
Quarter: 2004Q3

REPORT INFORMATION
  Report Type: 
  Country: None (occurrence: None)
  Receive Date: 20040927
  Receipt Date: 20040917
  Transmission Date: 20050211
  Serious: Yes (Other)
  Sender: FDA-Public Use
  Company Number: DE-AMGEN-UK091961

PATIENT
  Age: 40 Year
  Sex: Female

DRUGS (2)
  1. NEUPOGEN [Suspect]
     Indication: BLOOD STEM CELL HARVEST
     Route: 058
  2. CYCLOPHOSPHAMIDE [Concomitant]
     Route: 042

REACTIONS (6)
  - DYSPNOEA [None]
  - EYE PAIN [None]
  - EYE SWELLING [None]
  - STRIDOR [None]
  - TRACHEAL STENOSIS [None]
  - VASCULITIS [None]
